FAERS Safety Report 18766836 (Version 1)
Quarter: 2021Q1

REPORT INFORMATION
  Report Type: Spontaneous
  Country: US (occurrence: US)
  Receive Date: 20210120
  Receipt Date: 20210120
  Transmission Date: 20210419
  Serious: No
  Sender: FDA-Public Use
  Company Number: None

PATIENT
  Age: 67 Year
  Sex: Male
  Weight: 83.57 kg

DRUGS (1)
  1. DIVALPROEX [Suspect]
     Active Substance: DIVALPROEX SODIUM
     Dates: end: 20201120

REACTIONS (3)
  - Poor quality sleep [None]
  - Delirium [None]
  - Ammonia increased [None]

NARRATIVE: CASE EVENT DATE: 20201120
